FAERS Safety Report 15931316 (Version 2)
Quarter: 2019Q2

REPORT INFORMATION
  Report Type: Spontaneous
  Country: SG (occurrence: SG)
  Receive Date: 20190207
  Receipt Date: 20190412
  Transmission Date: 20190711
  Serious: Yes (Other)
  Sender: FDA-Public Use
  Company Number: SG-ASTRAZENECA-2019SE18001

PATIENT

DRUGS (1)
  1. SYMBICORT [Suspect]
     Active Substance: BUDESONIDE\FORMOTEROL FUMARATE DIHYDRATE
     Indication: ASTHMA
     Dosage: 160/4.5 UG 60D, UNKNOWN FREQUENCY UNKNOWN
     Route: 055

REACTIONS (3)
  - Syncope [Unknown]
  - Asthma [Recovering/Resolving]
  - Device malfunction [Unknown]
